FAERS Safety Report 9435736 (Version 1)
Quarter: 2013Q3

REPORT INFORMATION
  Report Type: Spontaneous
  Country: VE (occurrence: VE)
  Receive Date: 20130801
  Receipt Date: 20130801
  Transmission Date: 20140515
  Serious: Yes (Hospitalization)
  Sender: FDA-Public Use
  Company Number: VE-ABBOTT-13P-178-1126452-00

PATIENT
  Sex: Female

DRUGS (1)
  1. SEVORANE [Suspect]
     Indication: MAINTENANCE OF ANAESTHESIA
     Route: 055
     Dates: start: 20130620, end: 20130620

REACTIONS (2)
  - Central nervous system necrosis [Not Recovered/Not Resolved]
  - Insomnia [Not Recovered/Not Resolved]
